FAERS Safety Report 9931003 (Version 1)
Quarter: 2014Q1

REPORT INFORMATION
  Report Type: Spontaneous
  Country: IT (occurrence: IT)
  Receive Date: 20140227
  Receipt Date: 20140227
  Transmission Date: 20141002
  Serious: Yes (Other)
  Sender: FDA-Public Use
  Company Number: PHHY2014IT023993

PATIENT
  Sex: Male

DRUGS (3)
  1. ZOMETA [Suspect]
     Indication: RENAL CANCER METASTATIC
     Dosage: UNK UKN, UNK
     Route: 042
     Dates: start: 20100329, end: 20120329
  2. PRADIF [Concomitant]
     Dosage: UNK UKN, UNK
  3. EUTIROX [Concomitant]
     Dosage: UNK UKN, UNK

REACTIONS (1)
  - Osteonecrosis of jaw [Unknown]
